FAERS Safety Report 17305287 (Version 1)
Quarter: 2020Q1

REPORT INFORMATION
  Report Type: Report from Study
  Country: US (occurrence: US)
  Receive Date: 20200123
  Receipt Date: 20200123
  Transmission Date: 20200409
  Serious: Yes (Other)
  Sender: FDA-Public Use
  Company Number: NVSC2020US012982

PATIENT
  Sex: Female

DRUGS (1)
  1. ENTRESTO [Suspect]
     Active Substance: SACUBITRIL\VALSARTAN
     Indication: CARDIAC FAILURE
     Dosage: 1 DF, BID (24 MG OF SACUBITRIL/ 26 MG OF VALSARTAN)
     Route: 048

REACTIONS (3)
  - Bronchitis [Unknown]
  - Nasopharyngitis [Unknown]
  - Speech disorder [Unknown]
